FAERS Safety Report 5134407-4 (Version None)
Quarter: 2006Q4

REPORT INFORMATION
  Report Type: 
  Country: None (occurrence: None)
  Receive Date: 20061025
  Receipt Date: 20061017
  Transmission Date: 20070319
  Serious: Yes (Hospitalization, Other)
  Sender: FDA-Public Use
  Company Number: US-AMGEN-STX197189

PATIENT
  Sex: Female

DRUGS (2)
  1. ENBREL [Suspect]
     Indication: RHEUMATOID ARTHRITIS
     Route: 058
     Dates: start: 20000101
  2. PLAQUENIL [Concomitant]
     Dates: start: 20030101

REACTIONS (2)
  - HAEMOGLOBIN DECREASED [None]
  - IRON DEFICIENCY ANAEMIA [None]
